FAERS Safety Report 9336904 (Version 2)
Quarter: 2013Q3

REPORT INFORMATION
  Report Type: Report from Study
  Country: DE (occurrence: DE)
  Receive Date: 20130607
  Receipt Date: 20130726
  Transmission Date: 20140515
  Serious: Yes (Death, Hospitalization)
  Sender: FDA-Public Use
  Company Number: DE-PFIZER INC-2013124071

PATIENT
  Age: 57 Year
  Sex: Male
  Weight: 77 kg

DRUGS (6)
  1. IRINOTECAN HCL [Suspect]
     Indication: COLORECTAL CANCER METASTATIC
     Dosage: 180 MG/M2, CYCLIC, ON DAY ONE EVERY 14 DAYS
     Route: 042
     Dates: start: 20121206, end: 20130408
  2. FLUOROURACIL [Suspect]
     Indication: COLORECTAL CANCER METASTATIC
     Dosage: 400 MG/M2, CYCLIC, ON DAY ONE EVERY 14 DAYS
     Route: 042
     Dates: start: 20121206, end: 20130408
  3. FLUOROURACIL [Suspect]
     Dosage: 2400 MG/M2, ON DAY ONE AND TWO EVERY 14 DAYS
     Route: 042
     Dates: start: 20121206, end: 20130408
  4. FOLINIC ACID [Suspect]
     Indication: COLORECTAL CANCER METASTATIC
     Dosage: 400 MG/M2, CYCLIC, ON DAY ONE EVERY 14 DAYS
     Route: 042
     Dates: start: 20121206, end: 20130408
  5. BLINDED THERAPY [Suspect]
     Indication: COLORECTAL CANCER METASTATIC
     Dosage: UNK
     Route: 042
     Dates: start: 20121206, end: 20130408
  6. DIGITOXIN [Concomitant]
     Indication: TACHYARRHYTHMIA

REACTIONS (3)
  - Sepsis [Fatal]
  - Colitis [Not Recovered/Not Resolved]
  - Renal failure acute [Not Recovered/Not Resolved]
